FAERS Safety Report 5361661-6 (Version None)
Quarter: 2007Q2

REPORT INFORMATION
  Report Type: 
  Country: None (occurrence: None)
  Receive Date: 20070530
  Receipt Date: 20070112
  Transmission Date: 20071010
  Serious: No
  Sender: FDA-Public Use
  Company Number: 2007PV028297

PATIENT
  Age: 65 Year
  Sex: Male
  Weight: 102.0593 kg

DRUGS (4)
  1. BYETTA [Suspect]
     Indication: DIABETES MELLITUS NON-INSULIN-DEPENDENT
     Dosage: 10;5 MCG;BID;SC
     Route: 058
     Dates: start: 20061201, end: 20070101
  2. BYETTA [Suspect]
     Indication: DIABETES MELLITUS NON-INSULIN-DEPENDENT
     Dosage: 10;5 MCG;BID;SC
     Route: 058
     Dates: start: 20070101
  3. PRANDIN [Concomitant]
  4. GLUCOPHAGE [Concomitant]

REACTIONS (8)
  - ARTHRALGIA [None]
  - BLOOD GLUCOSE FLUCTUATION [None]
  - DECREASED APPETITE [None]
  - DYSPHAGIA [None]
  - GOUT [None]
  - HYPERHIDROSIS [None]
  - HYPOGLYCAEMIA [None]
  - NAUSEA [None]
